FAERS Safety Report 4549426-6 (Version None)
Quarter: 2005Q1

REPORT INFORMATION
  Report Type: 
  Country: None (occurrence: None)
  Receive Date: 20050111
  Receipt Date: 20050104
  Transmission Date: 20050727
  Serious: Yes (Life-Threatening, Hospitalization)
  Sender: FDA-Public Use
  Company Number: 200510132GDDC

PATIENT
  Age: 92 Year
  Sex: Male

DRUGS (20)
  1. ENOXAPARIN SODIUM [Suspect]
     Indication: MYOCARDIAL INFARCTION
     Route: 058
     Dates: start: 20041206, end: 20041207
  2. DIAZEPAM [Concomitant]
     Route: 048
     Dates: start: 20041126
  3. LANSOPRAZOLE [Concomitant]
     Route: 048
  4. NICORANDIL [Concomitant]
     Route: 048
  5. ASPIRIN [Concomitant]
     Route: 048
     Dates: start: 20041207
  6. ATENOLOL [Concomitant]
     Route: 048
  7. SIMVASTATIN [Concomitant]
     Route: 048
  8. CODEINE PHOSPHATE [Concomitant]
     Route: 048
     Dates: end: 20041207
  9. SENNA [Concomitant]
     Route: 048
  10. CALCICHEW-D3 [Concomitant]
     Route: 048
     Dates: end: 20041206
  11. ACETAMINOPHEN [Concomitant]
     Route: 048
  12. MACROGOL [Concomitant]
     Route: 048
     Dates: end: 20041206
  13. DIAMORPHINE [Concomitant]
     Route: 042
     Dates: start: 20041207, end: 20041208
  14. GTN [Concomitant]
     Route: 048
     Dates: start: 20041209
  15. METOCLOPRAMIDE [Concomitant]
     Route: 042
     Dates: start: 20041207, end: 20041207
  16. ADCAL-D3 [Concomitant]
     Route: 048
     Dates: start: 20041206
  17. MOVICOL [Concomitant]
     Dosage: DOSE: 1 SACHET
     Route: 048
     Dates: start: 20041209
  18. TRAMADOL HCL [Concomitant]
     Route: 048
     Dates: start: 20041213
  19. CIPROFLOXACIN [Concomitant]
     Route: 042
     Dates: start: 20041207, end: 20041207
  20. METRONIDAZOLE [Concomitant]
     Route: 042
     Dates: start: 20041207, end: 20041207

REACTIONS (2)
  - ABDOMINAL PAIN [None]
  - UPPER GASTROINTESTINAL HAEMORRHAGE [None]
